FAERS Safety Report 12182090 (Version 1)
Quarter: 2016Q1

REPORT INFORMATION
  Report Type: Spontaneous
  Country: FR (occurrence: FR)
  Receive Date: 20160315
  Receipt Date: 20160315
  Transmission Date: 20160526
  Serious: Yes (Hospitalization)
  Sender: FDA-Public Use
  Company Number: FR-IGI LABORATORIES, INC.-1049134

PATIENT
  Age: 81 Year
  Sex: Male

DRUGS (13)
  1. TOBRABACT [Concomitant]
  2. VANCOMYCIN HYDROCHLORIDE. [Suspect]
     Active Substance: VANCOMYCIN HYDROCHLORIDE
     Route: 047
     Dates: start: 20160112, end: 20160209
  3. DACUDOSES [Concomitant]
  4. LASILIX [Concomitant]
     Active Substance: FUROSEMIDE
  5. FORTAZ [Suspect]
     Active Substance: CEFTAZIDIME SODIUM
     Indication: PSEUDOMONAS INFECTION
     Route: 042
     Dates: start: 20160112, end: 20160206
  6. CEFTAZIDIME. [Suspect]
     Active Substance: CEFTAZIDIME
     Route: 047
     Dates: start: 20160112, end: 20160209
  7. AMIKACIN SULFATE. [Suspect]
     Active Substance: AMIKACIN SULFATE
     Route: 047
     Dates: start: 20160112, end: 20160209
  8. PLAVIX [Concomitant]
     Active Substance: CLOPIDOGREL BISULFATE
  9. ESOMEPRAZOL [Concomitant]
     Active Substance: ESOMEPRAZOLE
  10. BORIC ACID [Concomitant]
     Active Substance: BORIC ACID
  11. VANCOMYCIN HYDROCHLORIDE. [Suspect]
     Active Substance: VANCOMYCIN HYDROCHLORIDE
     Route: 042
     Dates: start: 20160112, end: 20160204
  12. PROPRANOLOL [Concomitant]
     Active Substance: PROPRANOLOL\PROPRANOLOL HYDROCHLORIDE
  13. RIFAMYCINE [Concomitant]
     Active Substance: RIFAMYCIN SODIUM

REACTIONS (5)
  - Drug reaction with eosinophilia and systemic symptoms [Recovering/Resolving]
  - Rash pustular [Recovering/Resolving]
  - Toxic skin eruption [Recovering/Resolving]
  - Rash generalised [Recovering/Resolving]
  - Rash maculo-papular [Recovering/Resolving]

NARRATIVE: CASE EVENT DATE: 20160203
